FAERS Safety Report 5419375-X (Version None)
Quarter: 2007Q3

REPORT INFORMATION
  Report Type: 
  Country: None (occurrence: None)
  Receive Date: 20070816
  Receipt Date: 20070816
  Transmission Date: 20080115
  Serious: No
  Sender: FDA-Public Use
  Company Number: None

PATIENT
  Age: 17 Year
  Sex: Female
  Weight: 139 kg

DRUGS (1)
  1. AMPHOTERICIN B [Suspect]
     Indication: FUNGAL SKIN INFECTION
     Dosage: 700 MG
     Dates: start: 20070511, end: 20070511

REACTIONS (3)
  - BLOOD PRESSURE INCREASED [None]
  - DYSPNOEA [None]
  - GENERALISED ERYTHEMA [None]
